FAERS Safety Report 11060003 (Version 1)
Quarter: 2015Q2

REPORT INFORMATION
  Report Type: Spontaneous
  Country: US (occurrence: US)
  Receive Date: 20150423
  Receipt Date: 20150423
  Transmission Date: 20150821
  Serious: No
  Sender: FDA-Public Use
  Company Number: US-TEVA-554207USA

PATIENT
  Sex: Male

DRUGS (1)
  1. COPAXONE [Suspect]
     Active Substance: GLATIRAMER ACETATE
     Indication: MULTIPLE SCLEROSIS
     Dates: start: 201410

REACTIONS (5)
  - Adverse drug reaction [Unknown]
  - Chills [Unknown]
  - Feeling hot [Unknown]
  - Discomfort [Unknown]
  - Feeling cold [Unknown]
